FAERS Safety Report 9479784 (Version 1)
Quarter: 2013Q3

REPORT INFORMATION
  Report Type: Spontaneous
  Country: BR (occurrence: BR)
  Receive Date: 20130828
  Receipt Date: 20130828
  Transmission Date: 20140515
  Serious: Yes (Other)
  Sender: FDA-Public Use
  Company Number: BR-AMGEN-BRASP2013005904

PATIENT
  Age: 68 Year
  Sex: Male
  Weight: 68 kg

DRUGS (7)
  1. ENBREL [Suspect]
     Indication: RHEUMATOID ARTHRITIS
     Dosage: 50 MG, ONCE WEEKLY
     Route: 058
     Dates: start: 201112, end: 201210
  2. OMEPRAZOL                          /00661201/ [Concomitant]
     Dosage: 20MG TAB 1X/DAY
     Route: 048
  3. PREDNISONE [Concomitant]
     Dosage: 10 MG, 2X/DAY
     Route: 048
  4. GLICONIL [Concomitant]
     Dosage: 5MG TAB 1X/DAY
     Route: 048
  5. LOSARTAN POTASSIUM [Concomitant]
     Dosage: 50 MG TAB 1X/DAY
     Route: 048
  6. HYDROXYCHLOROQUINE [Concomitant]
     Dosage: 400 (UNSPECIFIED UNIT), 1X/DAY
     Route: 048
  7. SIMVASTATIN [Concomitant]
     Dosage: 20 MG TAB 1X/DAY
     Route: 048

REACTIONS (1)
  - Pulmonary fibrosis [Unknown]
